FAERS Safety Report 4642241-4 (Version None)
Quarter: 2005Q2

REPORT INFORMATION
  Report Type: 
  Country: None (occurrence: None)
  Receive Date: 20050420
  Receipt Date: 20050405
  Transmission Date: 20051028
  Serious: Yes (Other)
  Sender: FDA-Public Use
  Company Number: US_0502113237

PATIENT
  Age: 54 Year
  Sex: Male

DRUGS (4)
  1. CYMBALTA [Suspect]
     Indication: DEPRESSION
     Dosage: 60 MG DAY
     Dates: start: 20041202, end: 20041220
  2. CIALIS [Concomitant]
  3. PRILOSEC (OMEPRAZOLE RATIOPHARM) [Concomitant]
  4. PHENOBARBITAL [Concomitant]

REACTIONS (5)
  - CONVULSION [None]
  - DRUG LEVEL BELOW THERAPEUTIC [None]
  - FATIGUE [None]
  - HYPOAESTHESIA [None]
  - SENSORY DISTURBANCE [None]
